FAERS Safety Report 16089726 (Version 1)
Quarter: 2019Q1

REPORT INFORMATION
  Report Type: Spontaneous
  Country: IT (occurrence: IT)
  Receive Date: 20190319
  Receipt Date: 20190319
  Transmission Date: 20190418
  Serious: Yes (Other)
  Sender: FDA-Public Use
  Company Number: IT-JAZZ-2019-IT-003501

PATIENT
  Age: 10 Year
  Sex: Male
  Weight: 28 kg

DRUGS (1)
  1. ASPARAGINASE [Suspect]
     Active Substance: ASPARAGINASE
     Indication: ACUTE LYMPHOCYTIC LEUKAEMIA
     Dosage: 2550 K IU PER CYCLE
     Route: 041
     Dates: start: 20190306, end: 20190306

REACTIONS (3)
  - Laryngeal oedema [Recovered/Resolved]
  - Conjunctival hyperaemia [Recovered/Resolved]
  - Back pain [Recovered/Resolved]

NARRATIVE: CASE EVENT DATE: 20190306
